FAERS Safety Report 20476609 (Version 2)
Quarter: 2022Q2

REPORT INFORMATION
  Report Type: Spontaneous
  Country: DE (occurrence: DE)
  Receive Date: 20220215
  Receipt Date: 20220422
  Transmission Date: 20220721
  Serious: Yes (Death)
  Sender: FDA-Public Use
  Company Number: DE-NOVARTISPH-NVSC2022DE033834

PATIENT
  Age: 60 Year
  Sex: Male

DRUGS (8)
  1. METHYLPREDNISOLONE [Suspect]
     Active Substance: METHYLPREDNISOLONE
     Indication: Encephalitis autoimmune
     Dosage: 100 MG 1 HOUR BEFORE EACH DARATUMAB INFUSION (IV PREMEDICATION)
     Route: 042
  2. METHYLPREDNISOLONE [Suspect]
     Active Substance: METHYLPREDNISOLONE
     Indication: Premedication
     Dosage: 20 MG DAYS 1 AND 2 AFTER EACH DARATUMUMAB INFUSION
     Route: 048
  3. RITUXIMAB [Suspect]
     Active Substance: RITUXIMAB
     Indication: Encephalitis autoimmune
     Dosage: UNK
     Route: 065
  4. BORTEZOMIB [Suspect]
     Active Substance: BORTEZOMIB
     Indication: Encephalitis autoimmune
     Dosage: 1-1.3 MG/M2, CYCLIC (3 CYCLES)
     Route: 065
  5. DARATUMUMAB [Suspect]
     Active Substance: DARATUMUMAB
     Indication: Encephalitis autoimmune
     Dosage: 16 MG/KG, QW (1ST 8 CYCLES)
     Route: 042
  6. DARATUMUMAB [Suspect]
     Active Substance: DARATUMUMAB
     Dosage: 16 MG/KG, Q2W (5 CYCLES)
     Route: 042
  7. ACYCLOVIR [Concomitant]
     Active Substance: ACYCLOVIR
     Indication: Infection prophylaxis
     Dosage: 200 MG, QD
     Route: 065
  8. COTRIMOXAZOLE [Concomitant]
     Active Substance: SULFAMETHOXAZOLE\TRIMETHOPRIM
     Indication: Infection prophylaxis
     Dosage: 960 MG, TIW
     Route: 065

REACTIONS (2)
  - Septic shock [Fatal]
  - Product use in unapproved indication [Unknown]
